FAERS Safety Report 6930203-3 (Version None)
Quarter: 2010Q3

REPORT INFORMATION
  Report Type: 
  Country: None (occurrence: None)
  Receive Date: 20100817
  Receipt Date: 20100817
  Transmission Date: 20110219
  Serious: No
  Sender: FDA-Public Use
  Company Number: None

PATIENT
  Sex: Female
  Weight: 69.8539 kg

DRUGS (1)
  1. LOSARTAN POTASSIUM [Suspect]
     Indication: BLOOD PRESSURE ABNORMAL
     Dosage: 1/2 TABLET ONE DAILY
     Dates: start: 20100525

REACTIONS (3)
  - HYPOTENSION [None]
  - NAIL DISCOLOURATION [None]
  - NAIL DISORDER [None]
